FAERS Safety Report 19888482 (Version 1)
Quarter: 2021Q3

REPORT INFORMATION
  Report Type: Spontaneous
  Country: US (occurrence: US)
  Receive Date: 20210927
  Receipt Date: 20210927
  Transmission Date: 20211014
  Serious: No
  Sender: FDA-Public Use
  Company Number: None

PATIENT
  Age: 66 Year
  Sex: Male
  Weight: 79.2 kg

DRUGS (10)
  1. LEVOTHYROXINE 50MCG [Concomitant]
     Active Substance: LEVOTHYROXINE
  2. OXYCODONE 5MG [Concomitant]
     Active Substance: OXYCODONE
  3. METFORMIN [Concomitant]
     Active Substance: METFORMIN HYDROCHLORIDE
  4. OZEMPIC [Concomitant]
     Active Substance: SEMAGLUTIDE
  5. PREDNISONE 20MG [Concomitant]
     Active Substance: PREDNISONE
  6. BRAFTOVI [Suspect]
     Active Substance: ENCORAFENIB
     Indication: MALIGNANT MELANOMA
     Route: 048
     Dates: start: 20200609
  7. METOPROLOL SUCCINATE ER 25MG [Concomitant]
  8. OLMESARTAN 40MG [Concomitant]
     Active Substance: OLMESARTAN
  9. MEKTOVI [Suspect]
     Active Substance: BINIMETINIB
     Indication: MALIGNANT MELANOMA
     Route: 048
     Dates: start: 20200609
  10. ONDANSETRON 4MG [Concomitant]
     Active Substance: ONDANSETRON

REACTIONS (2)
  - Hypertension [None]
  - Hyperglycaemia [None]

NARRATIVE: CASE EVENT DATE: 20210927
